FAERS Safety Report 8032943-4 (Version None)
Quarter: 2012Q1

REPORT INFORMATION
  Report Type: 
  Country: None (occurrence: None)
  Receive Date: 20120110
  Receipt Date: 20111230
  Transmission Date: 20120608
  Serious: Yes (Hospitalization)
  Sender: FDA-Public Use
  Company Number: PT-SANOFI-AVENTIS-2011SA030175

PATIENT
  Age: 74 Year
  Sex: Male
  Weight: 70 kg

DRUGS (9)
  1. BLINDED THERAPY [Suspect]
     Indication: ACUTE CORONARY SYNDROME
     Route: 042
     Dates: start: 20110506, end: 20110510
  2. ASPIRIN [Suspect]
     Indication: ACUTE CORONARY SYNDROME
     Route: 048
     Dates: start: 20110505
  3. PLAVIX [Suspect]
     Indication: ACUTE CORONARY SYNDROME
     Route: 048
     Dates: start: 20110505
  4. ATORVASTATIN [Concomitant]
     Dates: start: 20110505, end: 20110511
  5. PLAVIX [Suspect]
  6. ALL OTHER THERAPEUTIC PRODUCTS [Concomitant]
     Dates: start: 20110505, end: 20110512
  7. POTASSIUM CHLORIDE [Concomitant]
     Dates: start: 20110505, end: 20110510
  8. ALPRAZOLAM [Concomitant]
     Dates: start: 20110505
  9. ASPIRIN [Suspect]

REACTIONS (8)
  - PERICARDIAL HAEMORRHAGE [None]
  - PLATELET COUNT DECREASED [None]
  - PROTHROMBIN TIME PROLONGED [None]
  - ACTIVATED PARTIAL THROMBOPLASTIN TIME PROLONGED [None]
  - INFUSION SITE HAEMORRHAGE [None]
  - HAEMOGLOBIN DECREASED [None]
  - HAEMATOCRIT DECREASED [None]
  - INTERNATIONAL NORMALISED RATIO INCREASED [None]
